FAERS Safety Report 7951644-1 (Version None)
Quarter: 2011Q4

REPORT INFORMATION
  Report Type: 
  Country: None (occurrence: None)
  Receive Date: 20111201
  Receipt Date: 20111122
  Transmission Date: 20120403
  Serious: Yes (Hospitalization)
  Sender: FDA-Public Use
  Company Number: US-CELGENEUS-028-21880-11073046

PATIENT
  Sex: Male

DRUGS (8)
  1. REVLIMID [Suspect]
     Indication: MULTIPLE MYELOMA
     Dosage: 10 MILLIGRAM
     Route: 048
     Dates: start: 20100316, end: 20110722
  2. METFORMIN HCL [Concomitant]
     Route: 065
  3. DIOVAN [Concomitant]
     Route: 065
  4. ASPIRIN [Concomitant]
     Dosage: 81 MILLIGRAM
     Route: 065
  5. CALCIUM CARBONATE [Concomitant]
     Route: 065
  6. FLOMAX [Concomitant]
     Route: 065
  7. MILK OF MAGNESIA TAB [Concomitant]
     Route: 065
  8. RANTIDINE [Concomitant]
     Route: 065

REACTIONS (2)
  - CONVULSION [None]
  - DYSPEPSIA [None]
